FAERS Safety Report 8897199 (Version 1)
Quarter: 2012Q4

REPORT INFORMATION
  Report Type: 
  Country: US (occurrence: US)
  Receive Date: 20121108
  Receipt Date: 20121108
  Transmission Date: 20130627
  Serious: No
  Sender: FDA-Public Use
  Company Number: US-AMGEN-USASP2012029266

PATIENT
  Sex: Female
  Weight: 86.17 kg

DRUGS (5)
  1. ENBREL [Suspect]
     Indication: PRODUCT USED FOR UNKNOWN INDICATION
     Dosage: 50 mg, qwk
     Route: 058
  2. PREDNISONE [Concomitant]
     Dosage: 1 mg, UNK
  3. AVALIDE [Concomitant]
  4. MOBIC [Concomitant]
     Dosage: 7.5 mg, UNK
  5. BABY ASPIRIN [Concomitant]
     Dosage: 81 mg, UNK

REACTIONS (2)
  - Nausea [Unknown]
  - Haemorrhage [Unknown]
